FAERS Safety Report 9707750 (Version 1)
Quarter: 2013Q4

REPORT INFORMATION
  Report Type: Spontaneous
  Country: US (occurrence: None)
  Receive Date: 20131122
  Receipt Date: 20131122
  Transmission Date: 20140711
  Serious: Yes (Hospitalization)
  Sender: FDA-Public Use
  Company Number: None

PATIENT
  Age: 59 None
  Sex: Male
  Weight: 106.6 kg

DRUGS (1)
  1. NAFCILLIN [Suspect]
     Route: 042
     Dates: start: 20130906, end: 20130912

REACTIONS (1)
  - Tubulointerstitial nephritis [None]
